FAERS Safety Report 4851433-0 (Version None)
Quarter: 2005Q4

REPORT INFORMATION
  Report Type: 
  Country: None (occurrence: None)
  Receive Date: 20051208
  Receipt Date: 20051130
  Transmission Date: 20060501
  Serious: Yes (Hospitalization, Other)
  Sender: FDA-Public Use
  Company Number: HQWYE787101DEC05

PATIENT
  Sex: Female

DRUGS (1)
  1. TAZONAM (PIPRACILLIN/TAZOBACTAM, INJECTION) [Suspect]
     Indication: ABSCESS
     Dosage: 4.5 G 3X PER 1 DAY

REACTIONS (1)
  - WOUND DEHISCENCE [None]
